FAERS Safety Report 7324524-2 (Version None)
Quarter: 2011Q1

REPORT INFORMATION
  Report Type: 
  Country: None (occurrence: None)
  Receive Date: 20110301
  Receipt Date: 20110217
  Transmission Date: 20110831
  Serious: Yes (Other)
  Sender: FDA-Public Use
  Company Number: US-PFIZER INC-2011036540

PATIENT

DRUGS (4)
  1. TRAMADOL [Concomitant]
     Dosage: UNK
  2. SEROQUEL [Concomitant]
     Dosage: UNK
  3. PROPRANOLOL [Concomitant]
     Dosage: UNK
  4. PRISTIQ [Suspect]
     Dosage: 50 MG, UNK
     Dates: start: 20090101

REACTIONS (7)
  - ANXIETY [None]
  - IRRITABILITY [None]
  - MALAISE [None]
  - SUICIDAL IDEATION [None]
  - NAUSEA [None]
  - VOMITING [None]
  - AGGRESSION [None]
